FAERS Safety Report 10992394 (Version 1)
Quarter: 2015Q2

REPORT INFORMATION
  Report Type: Report from Study
  Country: US (occurrence: US)
  Receive Date: 20150406
  Receipt Date: 20150406
  Transmission Date: 20150821
  Serious: Yes (Other)
  Sender: FDA-Public Use
  Company Number: PHEH2015US006274

PATIENT
  Sex: Female

DRUGS (1)
  1. TOBI PODHALER [Suspect]
     Active Substance: TOBRAMYCIN
     Indication: PRODUCT USED FOR UNKNOWN INDICATION
     Dosage: 112 MG, CONTENT OF 4 CAPSULES EVERY 12 HOURS EVERY OTHER MONTH
     Route: 055

REACTIONS (6)
  - Viral infection [Unknown]
  - Influenza [Unknown]
  - Breast mass [Unknown]
  - Body temperature increased [Unknown]
  - Cough [Unknown]
  - Rhinorrhoea [Unknown]
